FAERS Safety Report 6966086-5 (Version None)
Quarter: 2010Q3

REPORT INFORMATION
  Report Type: 
  Country: None (occurrence: None)
  Receive Date: 20100903
  Receipt Date: 20100823
  Transmission Date: 20110219
  Serious: Yes (Other)
  Sender: FDA-Public Use
  Company Number: PHHY2010BR55951

PATIENT
  Age: 58 Year
  Sex: Female

DRUGS (1)
  1. TEGRETOL-XR [Suspect]
     Dosage: 400 MG, UNK
     Route: 048
     Dates: start: 20080101

REACTIONS (9)
  - ABASIA [None]
  - AGITATION [None]
  - APHASIA [None]
  - CONVULSION [None]
  - FEELING ABNORMAL [None]
  - MOVEMENT DISORDER [None]
  - PARALYSIS [None]
  - RESTLESSNESS [None]
  - SOMNOLENCE [None]
